FAERS Safety Report 9193821 (Version 1)
Quarter: 2013Q1

REPORT INFORMATION
  Report Type: Spontaneous
  Country: US (occurrence: US)
  Receive Date: 20130327
  Receipt Date: 20130327
  Transmission Date: 20140127
  Serious: Yes (Death)
  Sender: FDA-Public Use
  Company Number: US-JNJFOC-20130117239

PATIENT
  Sex: 0

DRUGS (6)
  1. DOXORUBICIN [Suspect]
     Indication: B-CELL LYMPHOMA
     Dosage: SIX CYCLES EVERY 21 DAYS, 124 MG
     Route: 042
  2. CYCLOPHOSPHAMIDE [Suspect]
     Indication: B-CELL LYMPHOMA
     Dosage: SIX CYCLES EVERY 21 DAYS
     Route: 042
  3. VINCRISTINE [Suspect]
     Indication: B-CELL LYMPHOMA
     Dosage: SIX CYCLES EVERY 21 DAYS
     Route: 042
  4. PREDNISONE [Suspect]
     Indication: B-CELL LYMPHOMA
     Dosage: SIX CYCLES EVERY 21 DAYS, 5 DAYS EACH CYCLE
     Route: 048
  5. TOSITUMOMAB-IODINE 131 [Suspect]
     Indication: B-CELL LYMPHOMA
     Dosage: 7 TO 14 DAYS AFTER THE DOSIMETRIC INFUSION
     Route: 065
  6. TOSITUMOMAB [Suspect]
     Indication: B-CELL LYMPHOMA
     Dosage: 7 TO 14 DAYS AFTER THE DOSIMETRIC INFUSION
     Route: 065

REACTIONS (1)
  - Respiratory failure [Fatal]
